FAERS Safety Report 13631684 (Version 1)
Quarter: 2017Q2

REPORT INFORMATION
  Report Type: Spontaneous
  Country: US (occurrence: US)
  Receive Date: 20170531
  Receipt Date: 20170531
  Transmission Date: 20170830
  Serious: No
  Sender: FDA-Public Use
  Company Number: US-ASTELLAS-1404082

PATIENT
  Sex: Female

DRUGS (4)
  1. TARCEVA [Suspect]
     Active Substance: ERLOTINIB HYDROCHLORIDE
     Indication: NON-SMALL CELL LUNG CANCER
  2. TARCEVA [Suspect]
     Active Substance: ERLOTINIB HYDROCHLORIDE
     Indication: ADENOCARCINOMA
     Dosage: DAILY
     Route: 048
     Dates: start: 201111, end: 201312
  3. IRESSA [Concomitant]
     Active Substance: GEFITINIB
     Indication: LUNG NEOPLASM MALIGNANT
     Dosage: CHEMOTHERAPY
     Route: 048
  4. TARCEVA [Suspect]
     Active Substance: ERLOTINIB HYDROCHLORIDE
     Indication: LUNG NEOPLASM MALIGNANT

REACTIONS (5)
  - Rash [Recovered/Resolved]
  - Recurrent cancer [Unknown]
  - Diarrhoea [Recovered/Resolved]
  - Chest discomfort [Unknown]
  - Neoplasm progression [Unknown]
